FAERS Safety Report 7293910-1 (Version None)
Quarter: 2011Q1

REPORT INFORMATION
  Report Type: 
  Country: None (occurrence: None)
  Receive Date: 20110202
  Receipt Date: 20110106
  Transmission Date: 20110831
  Serious: Yes (Other)
  Sender: FDA-Public Use
  Company Number: JP-2011-10147

PATIENT
  Age: 70 Year
  Sex: Male
  Weight: 49 kg

DRUGS (8)
  1. ASPIRIN [Concomitant]
  2. MAGNESIUM OXIDE [Concomitant]
  3. AMITRIPTYLINE HCL [Concomitant]
  4. BACLOFEN [Concomitant]
  5. LOSARTAN + HIDROCLOROTIAZIDA (HYDROCHLOROTHIAZIDE, LOSARTAN) [Concomitant]
  6. PIRACETAM [Concomitant]
  7. PLETAAL (CILOSTAZOL) TABLET, 100MG MILLIGRAM(S) [Suspect]
     Indication: INTERMITTENT CLAUDICATION
     Dosage: 100 MG MILLIGRAM(S), ORAL
     Route: 048
     Dates: start: 20101124, end: 20110103
  8. LERCANIDIPINE [Concomitant]

REACTIONS (2)
  - HERNIA [None]
  - TENDON OPERATION [None]
